FAERS Safety Report 13814166 (Version 1)
Quarter: 2017Q3

REPORT INFORMATION
  Report Type: Spontaneous
  Country: US (occurrence: US)
  Receive Date: 20170730
  Receipt Date: 20170730
  Transmission Date: 20171127
  Serious: Yes (Other)
  Sender: FDA-Public Use
  Company Number: None

PATIENT
  Sex: Female
  Weight: 108 kg

DRUGS (9)
  1. CIPRO [Suspect]
     Active Substance: CIPROFLOXACIN HYDROCHLORIDE
     Indication: URINARY TRACT INFECTION
     Route: 048
  2. FLAX SEED [Concomitant]
     Active Substance: FLAX SEED
  3. LEVOTHRYOXIN [Concomitant]
  4. GINGER. [Concomitant]
     Active Substance: GINGER
  5. LISINOPRIL. [Concomitant]
     Active Substance: LISINOPRIL
  6. MELOXICAM. [Concomitant]
     Active Substance: MELOXICAM
  7. LEXAPRO [Concomitant]
     Active Substance: ESCITALOPRAM OXALATE
  8. PRAVASTATIN. [Concomitant]
     Active Substance: PRAVASTATIN
  9. TUMERIC [Concomitant]
     Active Substance: HERBALS\TURMERIC

REACTIONS (2)
  - Tendonitis [None]
  - Tendon rupture [None]

NARRATIVE: CASE EVENT DATE: 20161110
